FAERS Safety Report 18371308 (Version 1)
Quarter: 2020Q4

REPORT INFORMATION
  Report Type: Spontaneous
  Country: IN (occurrence: IN)
  Receive Date: 20201012
  Receipt Date: 20201012
  Transmission Date: 20210114
  Serious: Yes (Hospitalization, Other)
  Sender: FDA-Public Use
  Company Number: IN-LUPIN PHARMACEUTICALS INC.-2020-07018

PATIENT
  Age: 44 Year
  Sex: Male

DRUGS (15)
  1. ETHAMBUTOL [Concomitant]
     Active Substance: ETHAMBUTOL HYDROCHLORIDE
     Indication: PULMONARY TUBERCULOSIS
     Dosage: 1200 MILLIGRAM, QD (AS CATEGORY I ANTI-TUBERCULAR THERAPY (ATT))
     Route: 065
  2. RIFAMPIN. [Suspect]
     Active Substance: RIFAMPIN
     Indication: PULMONARY TUBERCULOSIS
     Dosage: 600 MILLIGRAM, QD (AS CATEGORY I ANTI-TUBERCULAR THERAPY (ATT))
     Route: 065
  3. ISONIAZID. [Suspect]
     Active Substance: ISONIAZID
     Indication: TUBERCULOSIS
     Dosage: UNK (TREATMENT RESTARTED BEFORE THE DIAGNOSIS OF MULTI-DRUG RESISTANT (MDR) TB)
     Route: 065
  4. ISONIAZID. [Suspect]
     Active Substance: ISONIAZID
     Dosage: 300 MILLIGRAM, QD (AS MODIFIED ATT REGIMEN)
     Route: 065
  5. ISONIAZID. [Suspect]
     Active Substance: ISONIAZID
     Indication: PULMONARY TUBERCULOSIS
     Dosage: 300 MILLIGRAM, QD
     Route: 065
  6. ETHIONAMIDE [Concomitant]
     Active Substance: ETHIONAMIDE
     Indication: TUBERCULOSIS
     Dosage: 500 MILLIGRAM, QD
     Route: 065
  7. ETHAMBUTOL [Concomitant]
     Active Substance: ETHAMBUTOL HYDROCHLORIDE
     Indication: TUBERCULOSIS
     Dosage: UNK (AS MODIFIED ATT REGIMEN)
     Route: 065
  8. PYRAZINAMIDE. [Suspect]
     Active Substance: PYRAZINAMIDE
     Indication: PULMONARY TUBERCULOSIS
     Dosage: 1500 MILLIGRAM, QD (AS CATEGORY I ANTI-TUBERCULAR THERAPY (ATT))
     Route: 065
  9. CEFTRIAXONE. [Concomitant]
     Active Substance: CEFTRIAXONE
     Indication: EVIDENCE BASED TREATMENT
     Dosage: UNK
     Route: 042
  10. MOXIFLOXACIN HYDROCHLORIDE. [Suspect]
     Active Substance: MOXIFLOXACIN HYDROCHLORIDE
     Indication: TUBERCULOSIS
     Dosage: 600 MILLIGRAM, QD
     Route: 065
  11. AMIKACIN. [Concomitant]
     Active Substance: AMIKACIN
     Indication: TUBERCULOSIS
     Dosage: 750 MILLIGRAM, QD
     Route: 042
  12. PYRIDOXINE [Concomitant]
     Active Substance: PYRIDOXINE
     Indication: PULMONARY TUBERCULOSIS
     Dosage: 20 MILLIGRAM, QD (AS CATEGORY I ANTI-TUBERCULAR THERAPY (ATT))
     Route: 065
  13. PYRIDOXINE [Concomitant]
     Active Substance: PYRIDOXINE
     Indication: TUBERCULOSIS
     Dosage: UNK (TREATMENT INITIATED AFTER DIAGNOSIS OF MULTI-DRUG RESISTANT (MDR)))
     Route: 065
  14. STREPTOMYCIN [Concomitant]
     Active Substance: STREPTOMYCIN SULFATE
     Indication: PULMONARY TUBERCULOSIS
     Dosage: 750 MILLIGRAM, QD
     Route: 065
  15. LEVOFLOXACIN. [Concomitant]
     Active Substance: LEVOFLOXACIN
     Indication: PULMONARY TUBERCULOSIS
     Dosage: 750 MILLIGRAM, QD (A MODIFIED ATT REGIMEN)
     Route: 065

REACTIONS (3)
  - Drug resistance [Unknown]
  - Toxic encephalopathy [Recovered/Resolved]
  - Drug-induced liver injury [Recovering/Resolving]
